FAERS Safety Report 8941135 (Version 6)
Quarter: 2014Q4

REPORT INFORMATION
  Report Type: Spontaneous
  Country: US (occurrence: US)
  Receive Date: 20121203
  Receipt Date: 20141204
  Transmission Date: 20150529
  Serious: Yes (Hospitalization, Disabling, Other)
  Sender: FDA-Public Use
  Company Number: US-009507513-1211USA012341

PATIENT
  Sex: Female

DRUGS (10)
  1. CALCIUM (UNSPECIFIED) [Concomitant]
     Active Substance: CALCIUM
     Indication: ROUTINE HEALTH MAINTENANCE
     Dosage: UNK
     Dates: start: 1997
  2. CHOLECALCIFEROL [Concomitant]
     Active Substance: CHOLECALCIFEROL
     Indication: ROUTINE HEALTH MAINTENANCE
     Dosage: UNK
     Dates: start: 1997
  3. FOSAMAX [Suspect]
     Active Substance: ALENDRONATE SODIUM
     Indication: OSTEOPOROSIS
  4. COQ10 [Concomitant]
     Active Substance: UBIDECARENONE
     Indication: ROUTINE HEALTH MAINTENANCE
     Dosage: UNK
     Dates: start: 1997
  5. VITAMINS (UNSPECIFIED) [Concomitant]
     Active Substance: VITAMINS
     Indication: ROUTINE HEALTH MAINTENANCE
     Dosage: UNK
     Dates: start: 1997
  6. OMEGA-3 MARINE TRIGLYCERIDES [Concomitant]
     Active Substance: FISH OIL
     Indication: ROUTINE HEALTH MAINTENANCE
     Dosage: UNK
     Dates: start: 1997
  7. FOSAMAX [Suspect]
     Active Substance: ALENDRONATE SODIUM
     Indication: OSTEOPENIA
     Dosage: 10 MG, QD
     Route: 048
     Dates: start: 20000523, end: 20000623
  8. ALENDRONATE SODIUM. [Suspect]
     Active Substance: ALENDRONATE SODIUM
  9. ASCORBIC ACID. [Concomitant]
     Active Substance: ASCORBIC ACID
     Indication: ROUTINE HEALTH MAINTENANCE
     Dosage: UNK
     Dates: start: 1997
  10. FOSAMAX [Suspect]
     Active Substance: ALENDRONATE SODIUM
     Indication: OSTEOPOROSIS PROPHYLAXIS
     Dosage: 70 MG, QD
     Route: 048
     Dates: start: 20000624, end: 2011

REACTIONS (48)
  - Intramedullary rod insertion [Unknown]
  - Spondylolisthesis [Unknown]
  - Femur fracture [Recovering/Resolving]
  - Osteoporosis [Not Recovered/Not Resolved]
  - Femur fracture [Not Recovered/Not Resolved]
  - Pulmonary hypertension [Unknown]
  - Osteoarthritis [Unknown]
  - Diverticulum [Unknown]
  - Vertebral foraminal stenosis [Unknown]
  - Arthropathy [Unknown]
  - Rheumatoid arthritis [Unknown]
  - Rash maculo-papular [Unknown]
  - Stress fracture [Not Recovered/Not Resolved]
  - Cataract operation [Unknown]
  - Tonsillectomy [Unknown]
  - Hydronephrosis [Unknown]
  - Arthritis [Unknown]
  - Femur fracture [Unknown]
  - Hip arthroplasty [Unknown]
  - Packed red blood cell transfusion [Unknown]
  - Epidural test dose [Unknown]
  - Cataract [Unknown]
  - Restrictive pulmonary disease [Unknown]
  - Sleep apnoea syndrome [Unknown]
  - Spinal fracture [Unknown]
  - Aortic calcification [Unknown]
  - Vascular calcification [Unknown]
  - Fall [Unknown]
  - Cardiac disorder [Unknown]
  - Lumbar spinal stenosis [Unknown]
  - Epidural test dose [Unknown]
  - Mitral valve incompetence [Unknown]
  - Syncope [Unknown]
  - Overdose [Unknown]
  - Back pain [Unknown]
  - Cardiac pacemaker insertion [Unknown]
  - Arthropathy [Unknown]
  - Hyponatraemia [Unknown]
  - Aortic valve incompetence [Unknown]
  - Bronchiectasis [Unknown]
  - Scoliosis [Unknown]
  - Low turnover osteopathy [Not Recovered/Not Resolved]
  - Tricuspid valve incompetence [Unknown]
  - Neurodermatitis [Unknown]
  - Trigeminal neuralgia [Unknown]
  - Basal cell carcinoma [Unknown]
  - Atrial fibrillation [Unknown]
  - Spinal deformity [Unknown]

NARRATIVE: CASE EVENT DATE: 2000
